FAERS Safety Report 17080986 (Version 1)
Quarter: 2019Q4

REPORT INFORMATION
  Report Type: Spontaneous
  Country: US (occurrence: US)
  Receive Date: 20191126
  Receipt Date: 20191126
  Transmission Date: 20200122
  Serious: Yes (Life-Threatening)
  Sender: FDA-Public Use
  Company Number: None

PATIENT
  Sex: Male
  Weight: 99.8 kg

DRUGS (1)
  1. KEYTRUDA [Suspect]
     Active Substance: PEMBROLIZUMAB
     Indication: BLADDER CANCER STAGE IV
     Dosage: ?          OTHER FREQUENCY:EVERY 3 WEEKS;?
     Route: 042
     Dates: start: 20191101, end: 20191101

REACTIONS (10)
  - Malaise [None]
  - Rash [None]
  - Dyspnoea [None]
  - Pyrexia [None]
  - Rash erythematous [None]
  - Decreased appetite [None]
  - Hypophagia [None]
  - Pemphigoid [None]
  - Pallor [None]
  - Diarrhoea [None]
